FAERS Safety Report 9844754 (Version 5)
Quarter: 2014Q3

REPORT INFORMATION
  Report Type: Spontaneous
  Country: US (occurrence: US)
  Receive Date: 20140127
  Receipt Date: 20140704
  Transmission Date: 20150326
  Serious: Yes (Hospitalization)
  Sender: FDA-Public Use
  Company Number: US-BEH-2014040260

PATIENT
  Sex: Female
  Weight: 72 kg

DRUGS (28)
  1. HEPARIN [Concomitant]
     Active Substance: HEPARIN SODIUM
  2. PHENERGAN [Concomitant]
     Active Substance: PROMETHAZINE HYDROCHLORIDE
  3. EPIPEN [Concomitant]
     Active Substance: EPINEPHRINE
  4. KLONOPIN [Concomitant]
     Active Substance: CLONAZEPAM
  5. ATENOLOL. [Concomitant]
     Active Substance: ATENOLOL
  6. ZYRTEC [Concomitant]
     Active Substance: CETIRIZINE HYDROCHLORIDE
  7. VITAMIN B12 [Concomitant]
     Active Substance: CYANOCOBALAMIN
  8. FERROUS SULFATE [Concomitant]
     Active Substance: FERROUS SULFATE\FERROUS SULFATE, DRIED
  9. MAGNESIUM OXIDE. [Concomitant]
     Active Substance: MAGNESIUM OXIDE
  10. OYSTER SHELL CALCIUM + D [Concomitant]
  11. SOMA [Concomitant]
     Active Substance: CARISOPRODOL
  12. TRAZODONE [Concomitant]
     Active Substance: TRAZODONE HYDROCHLORIDE
  13. OXYCODONE [Concomitant]
     Active Substance: OXYCODONE
  14. MIRALAX [Concomitant]
     Active Substance: POLYETHYLENE GLYCOL 3350
  15. VITAMIN D [Concomitant]
     Active Substance: CHOLECALCIFEROL
  16. HYDROCORTISONE. [Concomitant]
     Active Substance: HYDROCORTISONE
  17. BERINERT [Suspect]
     Active Substance: HUMAN C1-ESTERASE INHIBITOR
     Indication: HEREDITARY ANGIOEDEMA
     Dosage: 500 UNIT VIAL; 30 ML BY SLOW INJECTION AT A RATE OF 40 ML/MIN
     Route: 042
  18. CELEXA [Concomitant]
     Active Substance: CITALOPRAM HYDROBROMIDE
  19. PYRIDIUM [Concomitant]
     Active Substance: PHENAZOPYRIDINE
  20. VITAMINS NOS [Concomitant]
     Active Substance: VITAMINS
  21. OXYCONTIN [Concomitant]
     Active Substance: OXYCODONE HYDROCHLORIDE
  22. METHADONE [Concomitant]
     Active Substance: METHADONE HYDROCHLORIDE
  23. MIRAPEX [Concomitant]
     Active Substance: PRAMIPEXOLE DIHYDROCHLORIDE
  24. SODIUM CHLORIDE. [Concomitant]
     Active Substance: SODIUM CHLORIDE
  25. NORVASC [Concomitant]
     Active Substance: AMLODIPINE BESYLATE
  26. HYDROCHLOROTHIAZIDE. [Concomitant]
     Active Substance: HYDROCHLOROTHIAZIDE
  27. ZOFRAN [Concomitant]
     Active Substance: ONDANSETRON HYDROCHLORIDE
  28. DANAZOL. [Concomitant]
     Active Substance: DANAZOL

REACTIONS (5)
  - Central venous catheterisation [Unknown]
  - Endotracheal intubation [Unknown]
  - Pneumonia [Recovered/Resolved]
  - Sciatica [Recovered/Resolved]
  - Hereditary angioedema [Unknown]
